FAERS Safety Report 15593020 (Version 8)
Quarter: 2019Q3

REPORT INFORMATION
  Report Type: Report from Study
  Country: JP (occurrence: JP)
  Receive Date: 20181107
  Receipt Date: 20190730
  Transmission Date: 20191004
  Serious: Yes (Hospitalization)
  Sender: FDA-Public Use
  Company Number: JP-PFIZER INC-2018455375

PATIENT
  Age: 51 Year
  Sex: Male
  Weight: 54 kg

DRUGS (21)
  1. MEROPENEM TRIHYDRATE [Concomitant]
     Active Substance: MEROPENEM
     Indication: FEBRILE NEUTROPENIA
     Dosage: UNK
     Route: 065
  2. DAUNORUBICIN HCL [Suspect]
     Active Substance: DAUNORUBICIN HYDROCHLORIDE
     Dosage: UNK
     Route: 065
     Dates: start: 20181029
  3. ENOCITABINE [Suspect]
     Active Substance: ENOCITABINE
     Dosage: UNK
     Route: 065
     Dates: start: 20181029
  4. MERCAPTOPURINE RIBONUCLEOSIDE [Suspect]
     Active Substance: THIOINOSINE
     Dosage: UNK
     Route: 065
     Dates: start: 20181029
  5. LEVOFLOXACIN. [Concomitant]
     Active Substance: LEVOFLOXACIN
     Indication: FEBRILE NEUTROPENIA
     Dosage: UNK
     Route: 065
  6. VORICONAZOLE. [Suspect]
     Active Substance: VORICONAZOLE
     Indication: PROPHYLAXIS
     Dosage: UNK
     Route: 065
  7. ICLUSIG [Suspect]
     Active Substance: PONATINIB
     Dosage: 30 MG, QD
     Route: 048
     Dates: start: 20181029, end: 20181103
  8. STARASID [Suspect]
     Active Substance: CYTARABINE OCFOSFATE
     Indication: LEUKAEMIA
     Dosage: UNK
     Route: 065
     Dates: start: 20180524, end: 20181011
  9. LANSOPRAZOLE. [Suspect]
     Active Substance: LANSOPRAZOLE
     Dosage: UNK
     Route: 065
  10. ICLUSIG [Suspect]
     Active Substance: PONATINIB
     Indication: ACUTE MYELOID LEUKAEMIA
     Dosage: 15 MG, QD
     Route: 048
     Dates: start: 20180625, end: 20180702
  11. MERCAPTOPURINE RIBONUCLEOSIDE [Suspect]
     Active Substance: THIOINOSINE
     Dosage: UNK
     Route: 065
  12. MERCAPTOPURINE RIBONUCLEOSIDE [Suspect]
     Active Substance: THIOINOSINE
     Dosage: UNK
  13. CEFAZOLIN SODIUM. [Concomitant]
     Active Substance: CEFAZOLIN SODIUM
     Indication: DERMAL CYST
     Dosage: UNK
     Route: 065
  14. LEVOFLOXACIN. [Concomitant]
     Active Substance: LEVOFLOXACIN
     Indication: DERMAL CYST
  15. FILGRASTIM [Concomitant]
     Active Substance: FILGRASTIM
     Indication: FEBRILE NEUTROPENIA
     Dosage: UNK
     Route: 065
  16. ICLUSIG [Suspect]
     Active Substance: PONATINIB
     Dosage: 30 MG, QD
     Route: 048
     Dates: start: 20180703, end: 20180927
  17. FILGRASTIM [Concomitant]
     Active Substance: FILGRASTIM
     Indication: NEUTROPHIL COUNT DECREASED
  18. ICLUSIG [Suspect]
     Active Substance: PONATINIB
     Dosage: 45 MG, QD
     Route: 048
     Dates: start: 20181002, end: 20181028
  19. LOXOPROFEN [Concomitant]
     Active Substance: LOXOPROFEN
     Indication: FEBRILE NEUTROPENIA
     Dosage: UNK
     Route: 065
  20. ICLUSIG [Suspect]
     Active Substance: PONATINIB
     Dosage: 45 MG, QD
     Route: 048
     Dates: start: 20180928, end: 20180930
  21. PIPERACILLIN AND TAZOBACTAM [Concomitant]
     Active Substance: PIPERACILLIN SODIUM\TAZOBACTAM SODIUM
     Indication: FEBRILE NEUTROPENIA
     Dosage: UNK
     Route: 065

REACTIONS (9)
  - Febrile neutropenia [Recovered/Resolved]
  - Gynaecomastia [Recovering/Resolving]
  - Dermal cyst [Recovering/Resolving]
  - Neutrophil count decreased [Recovering/Resolving]
  - Therapeutic product effect incomplete [Unknown]
  - Photosensitivity reaction [Recovered/Resolved]
  - Blood calcium decreased [Recovering/Resolving]
  - Hepatic function abnormal [Recovering/Resolving]
  - White blood cell count decreased [Recovering/Resolving]

NARRATIVE: CASE EVENT DATE: 20180710
